FAERS Safety Report 13526166 (Version 1)
Quarter: 2017Q2

REPORT INFORMATION
  Report Type: Spontaneous
  Country: US (occurrence: US)
  Receive Date: 20170508
  Receipt Date: 20170508
  Transmission Date: 20170830
  Serious: Yes (Life-Threatening, Hospitalization)
  Sender: FDA-Public Use
  Company Number: None

PATIENT
  Age: 47 Year
  Sex: Female
  Weight: 117.9 kg

DRUGS (8)
  1. HYDROXYCHLROQUINE SULFATE [Suspect]
     Active Substance: HYDROXYCHLOROQUINE SULFATE
     Indication: DERMATOMYOSITIS
     Dosage: ?          QUANTITY:500 TABLET(S);?
     Route: 048
     Dates: start: 20170412, end: 20170425
  2. TRIAMCINOLONE ACETONIDE CREAM [Concomitant]
     Active Substance: TRIAMCINOLONE ACETONIDE
  3. DESONDIE [Concomitant]
  4. ADARAX [Concomitant]
  5. XANAX [Concomitant]
     Active Substance: ALPRAZOLAM
  6. PREDNISONE. [Concomitant]
     Active Substance: PREDNISONE
  7. MEN-PHOR ANTI ITCHING LOTION [Concomitant]
  8. AVEENO OATMEAL BATH [Concomitant]

REACTIONS (5)
  - Pruritus [None]
  - Swelling face [None]
  - Rash generalised [None]
  - Hypersensitivity [None]
  - Feeling abnormal [None]

NARRATIVE: CASE EVENT DATE: 20170425
